FAERS Safety Report 21275569 (Version 1)
Quarter: 2022Q3

REPORT INFORMATION
  Report Type: Spontaneous
  Country: US (occurrence: US)
  Receive Date: 20220831
  Receipt Date: 20220831
  Transmission Date: 20221026
  Serious: No
  Sender: FDA-Public Use
  Company Number: US-SHIONOGI, INC-2022000502

PATIENT
  Age: 4 Decade
  Sex: Female

DRUGS (12)
  1. FETROJA [Suspect]
     Active Substance: CEFIDEROCOL SULFATE TOSYLATE
     Indication: Wound infection bacterial
     Dosage: 2 G, 8 HOUR
     Route: 042
     Dates: start: 20220521, end: 20220704
  2. FETROJA [Suspect]
     Active Substance: CEFIDEROCOL SULFATE TOSYLATE
     Indication: Pseudomonas infection
  3. COLISTIN [Concomitant]
     Active Substance: COLISTIN
     Indication: Wound infection bacterial
     Dosage: 2 DOSES
     Route: 042
  4. COLISTIN [Concomitant]
     Active Substance: COLISTIN
     Indication: Pseudomonas infection
  5. COLISTIN [Concomitant]
     Active Substance: COLISTIN
     Indication: Drug resistance
  6. MEROPENEM [Concomitant]
     Active Substance: MEROPENEM
     Indication: Wound infection bacterial
     Route: 065
  7. MEROPENEM [Concomitant]
     Active Substance: MEROPENEM
     Indication: Pseudomonas infection
  8. MEROPENEM [Concomitant]
     Active Substance: MEROPENEM
     Indication: Drug resistance
  9. CUBICIN [Concomitant]
     Active Substance: DAPTOMYCIN
     Indication: Wound infection bacterial
     Route: 042
  10. CUBICIN [Concomitant]
     Active Substance: DAPTOMYCIN
     Indication: Pseudomonas infection
  11. CUBICIN [Concomitant]
     Active Substance: DAPTOMYCIN
     Indication: Drug resistance
  12. GABAPENTIN [Concomitant]
     Active Substance: GABAPENTIN
     Indication: Diabetic neuropathy
     Dosage: 300 MG
     Route: 065

REACTIONS (2)
  - Paraesthesia [Unknown]
  - Neuralgia [Unknown]

NARRATIVE: CASE EVENT DATE: 20220526
